FAERS Safety Report 7323988-8 (Version None)
Quarter: 2011Q1

REPORT INFORMATION
  Report Type: 
  Country: None (occurrence: None)
  Receive Date: 20110301
  Receipt Date: 20110221
  Transmission Date: 20110831
  Serious: Yes (Death, Other)
  Sender: FDA-Public Use
  Company Number: PL-PFIZER INC-PL-WYE-H17426210

PATIENT
  Age: 43 Year
  Sex: Male

DRUGS (7)
  1. TYGACIL [Suspect]
     Indication: PNEUMONIA KLEBSIELLA
  2. FLUCONAZOLE [Suspect]
     Route: 065
  3. TYGACIL [Suspect]
     Indication: ENTEROCOCCAL INFECTION
  4. UNASYN [Suspect]
     Route: 065
  5. TYGACIL [Suspect]
     Indication: CANDIDIASIS
     Route: 065
  6. METRONIDAZOLE [Suspect]
     Route: 065
  7. TYGACIL [Suspect]
     Indication: PNEUMONIA STAPHYLOCOCCAL

REACTIONS (3)
  - DISEASE PROGRESSION [None]
  - DRUG INEFFECTIVE [None]
  - PATHOGEN RESISTANCE [None]
